FAERS Safety Report 13762187 (Version 1)
Quarter: 2017Q3

REPORT INFORMATION
  Report Type: Spontaneous
  Country: US (occurrence: US)
  Receive Date: 20170717
  Receipt Date: 20170717
  Transmission Date: 20171127
  Serious: No
  Sender: FDA-Public Use
  Company Number: None

PATIENT
  Age: 55 Year
  Sex: Male
  Weight: 81.72 kg

DRUGS (1)
  1. VIVITROL [Suspect]
     Active Substance: NALTREXONE
     Indication: ALCOHOLISM
     Dosage: 380MG ONCE A MONTH IM INJECTION
     Route: 030
     Dates: start: 20170216

REACTIONS (1)
  - Myalgia [None]

NARRATIVE: CASE EVENT DATE: 20170216
